FAERS Safety Report 12851571 (Version 2)
Quarter: 2016Q4

REPORT INFORMATION
  Report Type: Spontaneous
  Country: GB (occurrence: GB)
  Receive Date: 20161016
  Receipt Date: 20161117
  Transmission Date: 20170207
  Serious: Yes (Other)
  Sender: FDA-Public Use
  Company Number: GB-BAXTER-2016BAX051760

PATIENT
  Sex: Male

DRUGS (2)
  1. ARTISS [Suspect]
     Active Substance: FIBRINOGEN HUMAN\THROMBIN HUMAN
     Indication: SURGERY
     Dosage: 1 SYRINGE FULL OF 4 ML ARTISS
     Route: 061
     Dates: start: 20160816
  2. ARTISS [Suspect]
     Active Substance: FIBRINOGEN HUMAN\THROMBIN HUMAN
     Indication: PROMOTION OF WOUND HEALING

REACTIONS (3)
  - Disease recurrence [Recovering/Resolving]
  - Haematoma [Recovering/Resolving]
  - Seroma [Recovering/Resolving]
